FAERS Safety Report 6152572-7 (Version None)
Quarter: 2009Q2

REPORT INFORMATION
  Report Type: 
  Country: None (occurrence: None)
  Receive Date: 20090413
  Receipt Date: 20090406
  Transmission Date: 20091009
  Serious: Yes (Other)
  Sender: FDA-Public Use
  Company Number: DE-BRISTOL-MYERS SQUIBB COMPANY-14575914

PATIENT
  Age: 42 Year
  Sex: Male

DRUGS (5)
  1. STREPTOMYCIN [Suspect]
     Indication: WHIPPLE'S DISEASE
  2. SULFAMETHOXAZOLE AND TRIMETHOPRIM [Suspect]
     Indication: WHIPPLE'S DISEASE
     Dates: start: 20060101
  3. CEFTRIAXONE [Suspect]
     Indication: WHIPPLE'S DISEASE
     Dates: start: 20060101
  4. DOXYCYCLINE [Suspect]
     Indication: WHIPPLE'S DISEASE
     Dates: start: 20060101
  5. HYDROXYCHLOROQUINE SULFATE [Suspect]
     Indication: WHIPPLE'S DISEASE
     Dates: start: 20060101

REACTIONS (4)
  - ERYTHEMA NODOSUM [None]
  - HERPES SIMPLEX [None]
  - IMMUNE RECONSTITUTION SYNDROME [None]
  - MASS [None]
